FAERS Safety Report 4348424-5 (Version None)
Quarter: 2004Q2

REPORT INFORMATION
  Report Type: 
  Country: None (occurrence: None)
  Receive Date: 20040422
  Receipt Date: 20040407
  Transmission Date: 20050107
  Serious: Yes (Congenital Anomaly)
  Sender: FDA-Public Use
  Company Number: TNZSE200400043

PATIENT
  Age: 0 Year
  Sex: Female

DRUGS (2)
  1. INNOHEP [Suspect]
     Indication: DEEP VEIN THROMBOSIS
     Dates: start: 19970101
  2. FRAGMIN [Suspect]
     Indication: DEEP VEIN THROMBOSIS
     Dates: start: 19970101

REACTIONS (4)
  - CONGENITAL GENITOURINARY ABNORMALITY [None]
  - MATERNAL DRUGS AFFECTING FOETUS [None]
  - OVARIAN CYST [None]
  - PLACENTAL INSUFFICIENCY [None]
